FAERS Safety Report 24950576 (Version 1)
Quarter: 2025Q1

REPORT INFORMATION
  Report Type: Spontaneous
  Country: NL (occurrence: NL)
  Receive Date: 20250210
  Receipt Date: 20250210
  Transmission Date: 20250409
  Serious: Yes (Life-Threatening, Hospitalization)
  Sender: AMGEN
  Company Number: None

PATIENT
  Age: 79 Year
  Sex: Male
  Weight: 53 kg

DRUGS (1)
  1. PROLIA [Suspect]
     Active Substance: DENOSUMAB
     Indication: Product used for unknown indication
     Dosage: 1 INJECTION EVERY 6 MONTHS
     Route: 065
     Dates: start: 20241130, end: 20241213

REACTIONS (2)
  - Hungry bone syndrome [Not Recovered/Not Resolved]
  - Hypocalcaemia [Not Recovered/Not Resolved]
